FAERS Safety Report 4471922-0 (Version None)
Quarter: 2004Q4

REPORT INFORMATION
  Report Type: 
  Country: None (occurrence: None)
  Receive Date: 20041006
  Receipt Date: 20040923
  Transmission Date: 20050328
  Serious: Yes (Other)
  Sender: FDA-Public Use
  Company Number: 2004069663

PATIENT
  Age: 74 Year
  Sex: Male
  Weight: 85.2762 kg

DRUGS (6)
  1. LIPITOR [Suspect]
     Indication: BLOOD CHOLESTEROL INCREASED
     Dosage: 20 MG (20 MG, 1 IN 1 D), ORAL
     Route: 048
  2. LEUPRORELIN ACETATE (LEUPRORELIN ACETATE) [Suspect]
     Indication: PROSTATE CANCER
     Dates: start: 20030701
  3. OMEPRAZOLE [Concomitant]
  4. VALSARTAN (VALSARTAN) [Concomitant]
  5. HYDROCHLOROTHIAZIDE [Concomitant]
  6. TAMSULOSIN (TAMSULOSIN) [Concomitant]

REACTIONS (7)
  - ASTHENIA [None]
  - FATIGUE [None]
  - MYALGIA [None]
  - PAIN IN EXTREMITY [None]
  - PROSTATE CANCER [None]
  - THYROIDECTOMY [None]
  - WEIGHT INCREASED [None]
